FAERS Safety Report 8344642-X (Version None)
Quarter: 2012Q2

REPORT INFORMATION
  Report Type: 
  Country: None (occurrence: None)
  Receive Date: 20120508
  Receipt Date: 20120503
  Transmission Date: 20120825
  Serious: Yes (Other)
  Sender: FDA-Public Use
  Company Number: CN-JNJFOC-20120501610

PATIENT
  Sex: Female
  Weight: 50 kg

DRUGS (1)
  1. RISPERIDONE [Suspect]
     Indication: SCHIZOPHRENIA, PARANOID TYPE
     Dosage: 2 MG AT NOON AND 3 MG IN THE EVENING
     Route: 048
     Dates: start: 20110430, end: 20110516

REACTIONS (1)
  - EXTRASYSTOLES [None]
